FAERS Safety Report 14372721 (Version 1)
Quarter: 2018Q1

REPORT INFORMATION
  Report Type: Spontaneous
  Country: US (occurrence: US)
  Receive Date: 20180110
  Receipt Date: 20180110
  Transmission Date: 20180509
  Serious: No
  Sender: FDA-Public Use
  Company Number: US-ASTRAZENECA-2018SE00130

PATIENT
  Age: 836 Month
  Sex: Male
  Weight: 88.5 kg

DRUGS (2)
  1. FARXIGA [Suspect]
     Active Substance: DAPAGLIFLOZIN PROPANEDIOL
     Indication: TYPE 2 DIABETES MELLITUS
     Route: 048
     Dates: start: 201706, end: 2017
  2. FARXIGA [Suspect]
     Active Substance: DAPAGLIFLOZIN PROPANEDIOL
     Indication: TYPE 2 DIABETES MELLITUS
     Route: 048
     Dates: start: 2017

REACTIONS (13)
  - Occipital neuralgia [Unknown]
  - Pruritus [Recovering/Resolving]
  - Abdominal discomfort [Recovering/Resolving]
  - Hunger [Recovering/Resolving]
  - Weight decreased [Unknown]
  - Rash [Recovering/Resolving]
  - Off label use [Recovered/Resolved]
  - Dizziness [Recovering/Resolving]
  - Swelling [Recovering/Resolving]
  - Dry throat [Recovering/Resolving]
  - Feeling abnormal [Recovering/Resolving]
  - Cerebral disorder [Not Recovered/Not Resolved]
  - Weight increased [Recovering/Resolving]

NARRATIVE: CASE EVENT DATE: 201706
